FAERS Safety Report 14490587 (Version 3)
Quarter: 2019Q2

REPORT INFORMATION
  Report Type: Spontaneous
  Country: US (occurrence: US)
  Receive Date: 20180206
  Receipt Date: 20190405
  Transmission Date: 20190711
  Serious: Yes (Other)
  Sender: FDA-Public Use
  Company Number: US-BIOGEN-2018BI00519026

PATIENT
  Age: 20 Year
  Sex: Female

DRUGS (1)
  1. SPINRAZA [Suspect]
     Active Substance: NUSINERSEN
     Indication: SPINAL MUSCULAR ATROPHY
     Route: 050

REACTIONS (4)
  - CSF glucose decreased [Unknown]
  - Xanthochromia [Unknown]
  - Back pain [Unknown]
  - CSF protein increased [Unknown]

NARRATIVE: CASE EVENT DATE: 20180129
